FAERS Safety Report 7511530-8 (Version None)
Quarter: 2011Q2

REPORT INFORMATION
  Report Type: 
  Country: None (occurrence: None)
  Receive Date: 20110519
  Receipt Date: 20110504
  Transmission Date: 20111010
  Serious: Yes (Death, Hospitalization, Other)
  Sender: FDA-Public Use
  Company Number: 2011MA005250

PATIENT
  Age: 46 Year
  Sex: Male

DRUGS (5)
  1. DEXAMETHASONE [Concomitant]
  2. MOVIPREP [Concomitant]
  3. NAPROXEN [Suspect]
     Indication: PAIN
     Dosage: 500 MG, BID;
  4. MORPHINE SULFATE [Concomitant]
  5. WARFARIN SODIUM [Concomitant]

REACTIONS (20)
  - HAEMOGLOBIN DECREASED [None]
  - AGGRESSION [None]
  - ASTHENIA [None]
  - HYPOTENSION [None]
  - TACHYCARDIA [None]
  - CONSTIPATION [None]
  - HYPERKALAEMIA [None]
  - HYPERHIDROSIS [None]
  - DEEP VEIN THROMBOSIS [None]
  - DISEASE PROGRESSION [None]
  - HYPONATRAEMIA [None]
  - ABDOMINAL PAIN [None]
  - AGITATION [None]
  - PULMONARY EMBOLISM [None]
  - ADRENAL NEOPLASM [None]
  - BACK PAIN [None]
  - TUMOUR HAEMORRHAGE [None]
  - CONFUSIONAL STATE [None]
  - ELECTROLYTE IMBALANCE [None]
  - LETHARGY [None]
